FAERS Safety Report 9170862 (Version 1)
Quarter: 2013Q1

REPORT INFORMATION
  Report Type: Spontaneous
  Country: US (occurrence: US)
  Receive Date: 20130319
  Receipt Date: 20130319
  Transmission Date: 20140127
  Serious: No
  Sender: FDA-Public Use
  Company Number: US-PFIZER INC-2013089013

PATIENT
  Sex: Female

DRUGS (1)
  1. ADVIL [Suspect]
     Dosage: 400 MG, AS NEEDED

REACTIONS (3)
  - Drug ineffective [Unknown]
  - Back pain [Recovered/Resolved]
  - Nausea [Unknown]
